FAERS Safety Report 16028222 (Version 1)
Quarter: 2019Q1

REPORT INFORMATION
  Report Type: Spontaneous
  Country: IN (occurrence: IN)
  Receive Date: 20190304
  Receipt Date: 20190304
  Transmission Date: 20190418
  Serious: Yes (Hospitalization, Other)
  Sender: FDA-Public Use
  Company Number: IN-PCCINC-2019-PEL-000048

PATIENT

DRUGS (5)
  1. NITROUS OXIDE W/OXYGEN [Suspect]
     Active Substance: NITROUS OXIDE\OXYGEN
     Dosage: UNK
     Route: 065
  2. ROCURONIUM [Suspect]
     Active Substance: ROCURONIUM BROMIDE
     Indication: INDUCTION OF ANAESTHESIA
     Dosage: 10 MILLIGRAM
     Route: 065
  3. SEVOFLURANE. [Suspect]
     Active Substance: SEVOFLURANE
     Indication: ANAESTHESIA
     Dosage: UNK
  4. PROPOFOL. [Suspect]
     Active Substance: PROPOFOL
     Indication: INDUCTION OF ANAESTHESIA
     Dosage: 20 MILLIGRAM
     Route: 065
  5. FENTANYL. [Suspect]
     Active Substance: FENTANYL
     Indication: INDUCTION OF ANAESTHESIA
     Dosage: 20 MICROGRAM
     Route: 065

REACTIONS (3)
  - Delayed recovery from anaesthesia [Recovered/Resolved]
  - Generalised tonic-clonic seizure [Recovered/Resolved]
  - Pneumocephalus [Recovered/Resolved]
